FAERS Safety Report 6384595-7 (Version None)
Quarter: 2009Q4

REPORT INFORMATION
  Report Type: 
  Country: None (occurrence: None)
  Receive Date: 20091001
  Receipt Date: 20090921
  Transmission Date: 20100525
  Serious: Yes (Hospitalization)
  Sender: FDA-Public Use
  Company Number: PHHY2009FR40788

PATIENT
  Age: 55 Year
  Sex: Female

DRUGS (3)
  1. VOLTAREN [Interacting]
     Dosage: UNK
     Dates: start: 20090227, end: 20090307
  2. DOLIPRANE [Suspect]
     Dosage: UNK
     Dates: start: 20090227, end: 20090307
  3. ZALDIAR [Suspect]
     Dosage: 37.5/325 MG
     Dates: start: 20090227, end: 20090307

REACTIONS (7)
  - ANAPHYLACTIC REACTION [None]
  - ERYTHEMA [None]
  - FOOD INTERACTION [None]
  - MALAISE [None]
  - TINNITUS [None]
  - TONGUE OEDEMA [None]
  - URTICARIA [None]
